FAERS Safety Report 24665085 (Version 4)
Quarter: 2024Q4

REPORT INFORMATION
  Report Type: Spontaneous
  Country: RU (occurrence: RU)
  Receive Date: 20241126
  Receipt Date: 20241224
  Transmission Date: 20250114
  Serious: Yes (Death, Hospitalization)
  Sender: NOVARTIS
  Company Number: RU-002147023-NVSC2024RU225730

PATIENT
  Age: 40 Year
  Sex: Male

DRUGS (2)
  1. SECUKINUMAB [Suspect]
     Active Substance: SECUKINUMAB
     Indication: Product used for unknown indication
     Dosage: 300 MG (ROUTE:INJECTION) (MORE THAN AN YEAR)
     Route: 065
     Dates: start: 202312
  2. SECUKINUMAB [Suspect]
     Active Substance: SECUKINUMAB
     Dosage: UNK,  (2 SYRINGES)
     Route: 065
     Dates: start: 202409

REACTIONS (5)
  - Arthritis bacterial [Fatal]
  - Staphylococcal infection [Fatal]
  - Sepsis [Fatal]
  - Pyrexia [Fatal]
  - Tachycardia [Fatal]

NARRATIVE: CASE EVENT DATE: 20241003
